FAERS Safety Report 5168321-5 (Version None)
Quarter: 2006Q4

REPORT INFORMATION
  Report Type: 
  Country: None (occurrence: None)
  Receive Date: 20061201
  Receipt Date: 20061120
  Transmission Date: 20070319
  Serious: Yes (Death)
  Sender: FDA-Public Use
  Company Number: A-CH2006-13636

PATIENT
  Age: 74 Year
  Sex: Female

DRUGS (3)
  1. TRACLEER [Suspect]
     Indication: PULMONARY HYPERTENSION
     Dosage: SEE IMAGE
     Route: 048
     Dates: start: 20060101
  2. TRACLEER [Suspect]
     Indication: PULMONARY HYPERTENSION
     Dosage: SEE IMAGE
     Route: 048
     Dates: start: 20061110
  3. SILDENAFIL CITRATE [Concomitant]

REACTIONS (5)
  - DISEASE PROGRESSION [None]
  - HYPOXIA [None]
  - OFF LABEL USE [None]
  - PULMONARY FIBROSIS [None]
  - UNEVALUABLE EVENT [None]
